FAERS Safety Report 6378070-3 (Version None)
Quarter: 2009Q3

REPORT INFORMATION
  Report Type: 
  Country: None (occurrence: None)
  Receive Date: 20090925
  Receipt Date: 20090922
  Transmission Date: 20100115
  Serious: Yes (Other)
  Sender: FDA-Public Use
  Company Number: US-JNJCH-2009025477

PATIENT
  Age: 52 Year
  Sex: Female
  Weight: 77.1 kg

DRUGS (3)
  1. VISINE-A [Suspect]
     Indication: EYE PRURITUS
     Dosage: TEXT:1-2 DROPS 1-2X PER DAY
     Route: 047
     Dates: start: 20090701, end: 20090918
  2. ALTACE [Concomitant]
     Indication: BLOOD PRESSURE
     Dosage: TEXT:10MG 2X PER DAY
     Route: 065
  3. HYDROCHLOROTHIAZIDE [Concomitant]
     Indication: BLOOD PRESSURE
     Dosage: TEXT:10MG ONCE A DAY
     Route: 065

REACTIONS (3)
  - BLOOD PRESSURE INCREASED [None]
  - HEART RATE INCREASED [None]
  - PRODUCT QUALITY ISSUE [None]
